FAERS Safety Report 8500532-0 (Version None)
Quarter: 2012Q3

REPORT INFORMATION
  Report Type: 
  Country: None (occurrence: None)
  Receive Date: 20120710
  Receipt Date: 20120705
  Transmission Date: 20120928
  Serious: Yes (Other)
  Sender: FDA-Public Use
  Company Number: CN-ABBOTT-12P-035-0954014-00

PATIENT
  Age: 77 Year
  Sex: Female

DRUGS (4)
  1. TOPIRAMATE [Concomitant]
     Indication: PRODUCT USED FOR UNKNOWN INDICATION
  2. DEPAKENE [Suspect]
     Indication: EPILEPSY
     Dosage: DAILY, EXTENDED RELEASE
     Route: 048
     Dates: start: 20120101, end: 20120501
  3. DEPAKENE [Suspect]
     Dosage: TWICE A DAY, EXTENDED RELEASE
     Route: 048
     Dates: start: 20120501, end: 20120701
  4. DEPAKENE [Suspect]
     Dosage: TWICE A DAY, EXTENDED RELEASE
     Route: 048
     Dates: start: 20120702

REACTIONS (5)
  - GAIT DISTURBANCE [None]
  - LOSS OF CONSCIOUSNESS [None]
  - FALL [None]
  - EPILEPSY [None]
  - ASTHENIA [None]
